FAERS Safety Report 19215187 (Version 3)
Quarter: 2025Q4

REPORT INFORMATION
  Report Type: Spontaneous
  Country: US (occurrence: US)
  Receive Date: 20210505
  Receipt Date: 20251011
  Transmission Date: 20260117
  Serious: No
  Sender: CIPLA
  Company Number: US-CIPLA LTD.-2021US00780

PATIENT

DRUGS (1)
  1. ALBUTEROL [Suspect]
     Active Substance: ALBUTEROL
     Indication: Product used for unknown indication
     Dosage: UNK
     Dates: start: 20210126

REACTIONS (3)
  - Circumstance or information capable of leading to device use error [Unknown]
  - Wrong technique in device usage process [Unknown]
  - Product label issue [Unknown]

NARRATIVE: CASE EVENT DATE: 20210126
